FAERS Safety Report 5123083-2 (Version None)
Quarter: 2006Q4

REPORT INFORMATION
  Report Type: 
  Country: None (occurrence: None)
  Receive Date: 20061004
  Receipt Date: 20061004
  Transmission Date: 20070319
  Serious: No
  Sender: FDA-Public Use
  Company Number: None

PATIENT
  Age: 64 Year
  Sex: Female
  Weight: 49.8957 kg

DRUGS (1)
  1. PRAVACHOL [Suspect]
     Indication: BLOOD CHOLESTEROL INCREASED
     Dosage: 80MG ONCE A DAY PO
     Route: 048
     Dates: start: 20040530, end: 20060713

REACTIONS (5)
  - AMNESIA [None]
  - GAIT DISTURBANCE [None]
  - INSOMNIA [None]
  - OSTEOARTHRITIS [None]
  - PAIN IN EXTREMITY [None]
